FAERS Safety Report 16608744 (Version 1)
Quarter: 2019Q3

REPORT INFORMATION
  Report Type: Spontaneous
  Country: FR (occurrence: FR)
  Receive Date: 20190722
  Receipt Date: 20190722
  Transmission Date: 20191004
  Serious: Yes (Hospitalization)
  Sender: FDA-Public Use
  Company Number: FR-PFIZER INC-2019304469

PATIENT
  Age: 48 Year
  Sex: Female
  Weight: 138 kg

DRUGS (20)
  1. LONOTEN [Suspect]
     Active Substance: MINOXIDIL
     Indication: HYPERTENSION
     Dosage: 10 MG, 1X/DAY
     Route: 048
     Dates: start: 20190327, end: 20190411
  2. XULTOPHY 100/3.6 [Concomitant]
     Active Substance: INSULIN DEGLUDEC\LIRAGLUTIDE
  3. FLUDEX [INDAPAMIDE] [Concomitant]
     Active Substance: INDAPAMIDE
     Dosage: UNK
  4. ASPIRINE PROTECT [Concomitant]
     Active Substance: ASPIRIN
  5. FOLIC ACID. [Concomitant]
     Active Substance: FOLIC ACID
  6. APROVEL [Concomitant]
     Active Substance: IRBESARTAN
  7. RIVOTRIL [Concomitant]
     Active Substance: CLONAZEPAM
  8. CRESTOR [Concomitant]
     Active Substance: ROSUVASTATIN CALCIUM
  9. PRIMPERAN [Concomitant]
     Active Substance: METOCLOPRAMIDE HYDROCHLORIDE
  10. HYPERIUM [Concomitant]
     Active Substance: RILMENIDINE PHOSPHATE
  11. LUTERAN [Concomitant]
     Active Substance: CHLORMADINONE ACETATE
     Dosage: UNK
  12. FIASP [Concomitant]
     Active Substance: INSULIN ASPART
  13. CORGARD [Concomitant]
     Active Substance: NADOLOL
  14. DAFALGAN [Concomitant]
     Active Substance: ACETAMINOPHEN
  15. IXEL [Concomitant]
     Active Substance: MILNACIPRAN HYDROCHLORIDE
  16. ALDACTONE [Concomitant]
     Active Substance: SPIRONOLACTONE
  17. EUPRESSYL [URAPIDIL HYDROCHLORIDE] [Concomitant]
     Active Substance: URAPIDIL HYDROCHLORIDE
     Dosage: UNK
  18. BISOCE [Concomitant]
     Active Substance: BISOPROLOL
     Dosage: UNK
  19. LYRICA [Concomitant]
     Active Substance: PREGABALIN
  20. METFORMIN [Concomitant]
     Active Substance: METFORMIN HYDROCHLORIDE

REACTIONS (2)
  - Cardiac failure [Recovered/Resolved]
  - Oedema [Recovered/Resolved]

NARRATIVE: CASE EVENT DATE: 20190411
